FAERS Safety Report 14735634 (Version 3)
Quarter: 2018Q2

REPORT INFORMATION
  Report Type: Report from Study
  Country: US (occurrence: US)
  Receive Date: 20180409
  Receipt Date: 20180606
  Transmission Date: 20180711
  Serious: Yes (Other)
  Sender: FDA-Public Use
  Company Number: US-BAYER-2018-045428

PATIENT
  Age: 61 Year
  Sex: Male

DRUGS (6)
  1. STIVARGA [Suspect]
     Active Substance: REGORAFENIB
     Indication: COLORECTAL CANCER METASTATIC
     Dosage: DAILY DOSE 160 MG (3 WEEKS ON 1 WEEK OFF)
     Route: 048
     Dates: start: 20180312, end: 20180329
  2. STIVARGA [Suspect]
     Active Substance: REGORAFENIB
     Indication: COLORECTAL CANCER
     Dosage: DAILY DOSE 120 MG
     Route: 048
     Dates: start: 20180305, end: 20180311
  3. STIVARGA [Suspect]
     Active Substance: REGORAFENIB
     Indication: COLORECTAL CANCER METASTATIC
     Dosage: 160 MG, QD
     Route: 048
     Dates: start: 2018, end: 20180504
  4. STIVARGA [Suspect]
     Active Substance: REGORAFENIB
     Indication: COLORECTAL CANCER METASTATIC
     Dosage: DAILY DOSE 80MG
     Route: 048
     Dates: start: 20180419, end: 20180422
  5. STIVARGA [Suspect]
     Active Substance: REGORAFENIB
     Indication: COLORECTAL CANCER METASTATIC
     Dosage: DAILY DOSE 80 MG
     Route: 048
     Dates: start: 20180226, end: 20180304
  6. STIVARGA [Suspect]
     Active Substance: REGORAFENIB
     Indication: COLORECTAL CANCER METASTATIC
     Dosage: DAILY DOSE 120 MG
     Route: 048
     Dates: start: 20180423, end: 2018

REACTIONS (23)
  - Rash [Recovered/Resolved]
  - Fatigue [None]
  - Myalgia [None]
  - Skin exfoliation [None]
  - Pain in extremity [None]
  - Weight decreased [None]
  - Fatigue [Not Recovered/Not Resolved]
  - Nausea [Recovering/Resolving]
  - Off label use [None]
  - Sleep disorder [Recovering/Resolving]
  - Dry mouth [None]
  - Metastases to lung [Recovering/Resolving]
  - Blood glucose increased [None]
  - Arthralgia [None]
  - Skin fissures [None]
  - Dehydration [None]
  - Hypoaesthesia oral [Recovered/Resolved]
  - Diarrhoea [Recovering/Resolving]
  - Constipation [None]
  - Dry skin [None]
  - Dysphonia [None]
  - Vomiting [None]
  - Neuropathy peripheral [Recovering/Resolving]

NARRATIVE: CASE EVENT DATE: 2018
